FAERS Safety Report 13472613 (Version 1)
Quarter: 2017Q2

REPORT INFORMATION
  Report Type: Spontaneous
  Country: US (occurrence: US)
  Receive Date: 20170423
  Receipt Date: 20170423
  Transmission Date: 20170830
  Serious: Yes (Other)
  Sender: FDA-Public Use
  Company Number: None

PATIENT
  Age: 65 Year
  Sex: Female
  Weight: 74.56 kg

DRUGS (5)
  1. ALTACE [Suspect]
     Active Substance: RAMIPRIL
     Dosage: ?          QUANTITY:1 CAPSULE(S);?
     Route: 048
     Dates: start: 20161215, end: 20170423
  2. VITAOLIVE [Concomitant]
  3. BIOACTIVE B12 [Concomitant]
  4. D3+K2 [Concomitant]
  5. VITAVISION 360 [Concomitant]

REACTIONS (2)
  - Weight increased [None]
  - Rash pruritic [None]

NARRATIVE: CASE EVENT DATE: 20161222
